FAERS Safety Report 6400159-0 (Version None)
Quarter: 2009Q4

REPORT INFORMATION
  Report Type: 
  Country: None (occurrence: None)
  Receive Date: 20091008
  Receipt Date: 20091008
  Transmission Date: 20100525
  Serious: Yes (Hospitalization)
  Sender: FDA-Public Use
  Company Number: None

PATIENT
  Age: 39 Year
  Sex: Female
  Weight: 90.7194 kg

DRUGS (1)
  1. TRILIPIX [Suspect]
     Indication: BLOOD TRIGLYCERIDES INCREASED
     Dosage: 135MG CAPSULES ONCE A DAY PO
     Route: 048
     Dates: start: 20090903, end: 20090927

REACTIONS (12)
  - BURNING SENSATION [None]
  - ERUCTATION [None]
  - GAIT DISTURBANCE [None]
  - HEADACHE [None]
  - KIDNEY INFECTION [None]
  - PAIN [None]
  - PAIN IN EXTREMITY [None]
  - PHOTOSENSITIVITY REACTION [None]
  - PRURITUS [None]
  - SENSATION OF FOREIGN BODY [None]
  - SKIN DISORDER [None]
  - URTICARIA [None]
